FAERS Safety Report 13744964 (Version 1)
Quarter: 2017Q3

REPORT INFORMATION
  Report Type: Spontaneous
  Country: US (occurrence: US)
  Receive Date: 20170711
  Receipt Date: 20170711
  Transmission Date: 20171127
  Serious: Yes (Hospitalization)
  Sender: FDA-Public Use
  Company Number: None

PATIENT
  Age: 37 Year
  Sex: Female

DRUGS (5)
  1. MSM [Concomitant]
     Active Substance: DIMETHYL SULFONE
  2. LEVOFLOXACIN 500 MG TABLET [Suspect]
     Active Substance: LEVOFLOXACIN
     Indication: URINARY TRACT INFECTION
     Dosage: ?          OTHER STRENGTH:MG;QUANTITY:1 TABLET(S);?
     Route: 048
     Dates: start: 20170519, end: 20170523
  3. VITAMIN D [Concomitant]
     Active Substance: CHOLECALCIFEROL
  4. MULTI VITAMIN [Concomitant]
     Active Substance: VITAMINS
  5. EPSOM SALT [Concomitant]
     Active Substance: MAGNESIUM SULFATE

REACTIONS (15)
  - Hot flush [None]
  - Erythema [None]
  - Asthenia [None]
  - Neuralgia [None]
  - Depression [None]
  - Syncope [None]
  - Flushing [None]
  - Restlessness [None]
  - Dizziness [None]
  - Anxiety [None]
  - Bedridden [None]
  - Nightmare [None]
  - Paraesthesia [None]
  - Gait inability [None]
  - Insomnia [None]

NARRATIVE: CASE EVENT DATE: 20170523
